FAERS Safety Report 14071003 (Version 1)
Quarter: 2017Q4

REPORT INFORMATION
  Report Type: Spontaneous
  Country: US (occurrence: US)
  Receive Date: 20171010
  Receipt Date: 20171010
  Transmission Date: 20180321
  Serious: Yes (Hospitalization)
  Sender: FDA-Public Use
  Company Number: US-JNJFOC-20170728739

PATIENT
  Age: 59 Year
  Sex: Male

DRUGS (4)
  1. IMBRUVICA [Suspect]
     Active Substance: IBRUTINIB
     Indication: WALDENSTROM^S MACROGLOBULINAEMIA
     Route: 048
     Dates: start: 20170907
  2. IBUPROFEN. [Concomitant]
     Active Substance: IBUPROFEN
  3. IMBRUVICA [Suspect]
     Active Substance: IBRUTINIB
     Indication: WALDENSTROM^S MACROGLOBULINAEMIA
     Route: 048
     Dates: start: 20170703, end: 201707
  4. SUPER BETA PROSTATE [Concomitant]
     Active Substance: DIETARY SUPPLEMENT

REACTIONS (2)
  - Bacterial infection [Unknown]
  - Rash pustular [Recovering/Resolving]

NARRATIVE: CASE EVENT DATE: 201707
